FAERS Safety Report 19786004 (Version 2)
Quarter: 2022Q1

REPORT INFORMATION
  Report Type: Other
  Country: US (occurrence: None)
  Receive Date: 20210903
  Receipt Date: 20220206
  Transmission Date: 20220424
  Serious: No
  Sender: FDA-Public Use
  Company Number: US-ROCHE-2898632

PATIENT
  Age: 71 Year
  Sex: Female
  Weight: 59.020 kg

DRUGS (14)
  1. OCREVUS [Suspect]
     Active Substance: OCRELIZUMAB
     Indication: Progressive multiple sclerosis
     Dosage: ONGOING YES?DATE OF TREATMENT: 19/FEB/2020, 03/AUG/2020, 03/FEB/2021, 18/AUG/2021.
     Route: 042
     Dates: start: 20200205
  2. SYNTHROID [Concomitant]
     Active Substance: LEVOTHYROXINE SODIUM
     Dosage: ONGOING YES
     Route: 048
  3. ASPIRIN [Concomitant]
     Active Substance: ASPIRIN
     Route: 048
  4. ATORVASTATIN [Concomitant]
     Active Substance: ATORVASTATIN
     Route: 048
  5. BACLOFEN [Concomitant]
     Active Substance: BACLOFEN
     Route: 048
  6. FLUZONE [Concomitant]
     Active Substance: INFLUENZA A VIRUS A/CALIFORNIA/7/2009 X-179A (H1N1) ANTIGEN (FORMALDEHYDE INACTIVATED)\INFLUENZA A V
     Route: 030
  7. KEPPRA [Concomitant]
     Active Substance: LEVETIRACETAM
     Route: 048
  8. MYRBETRIQ [Concomitant]
     Active Substance: MIRABEGRON
     Route: 048
  9. NEOMYCIN;POLYMYXIN [Concomitant]
  10. NITROGLYCERIN [Concomitant]
     Active Substance: NITROGLYCERIN
  11. PREVNAR [Concomitant]
     Active Substance: PNEUMOCOCCAL 7-VALENT CONJUGATE VACCINE (DIPHTHERIA CRM197 PROTEIN)
     Route: 030
  12. SHINGRIX [Concomitant]
     Active Substance: RECOMBINANT VARICELLA ZOSTER VIRUS (VZV) GLYCOPROTEIN E
  13. TEGRETOL XR [Concomitant]
     Active Substance: CARBAMAZEPINE
     Route: 048
  14. VITAMIN D3 [Concomitant]
     Active Substance: CHOLECALCIFEROL

REACTIONS (1)
  - COVID-19 [Recovered/Resolved]

NARRATIVE: CASE EVENT DATE: 20210801
